FAERS Safety Report 6377080-X (Version None)
Quarter: 2009Q3

REPORT INFORMATION
  Report Type: 
  Country: None (occurrence: None)
  Receive Date: 20090923
  Receipt Date: 20090923
  Transmission Date: 20100115
  Serious: Yes (Hospitalization)
  Sender: FDA-Public Use
  Company Number: None

PATIENT
  Age: 67 Year
  Sex: Male
  Weight: 90.3 kg

DRUGS (2)
  1. EPTIFIBATIDE [Suspect]
     Dosage: 7.9 ML ONCE IV
     Route: 042
     Dates: start: 20090725, end: 20090726
  2. HEPARIN SODIUM 1,000 UNITS IN SODIUM CHLORIDE 0.9% [Suspect]
     Dosage: 1000 UNITS PER HOUR IV
     Route: 042
     Dates: start: 20090724, end: 20090728

REACTIONS (7)
  - HAEMATOCRIT DECREASED [None]
  - HAEMOGLOBIN DECREASED [None]
  - HAEMOPTYSIS [None]
  - LEFT VENTRICULAR DYSFUNCTION [None]
  - PULMONARY HAEMORRHAGE [None]
  - PULMONARY OEDEMA [None]
  - VENTRICULAR HYPERTROPHY [None]
